FAERS Safety Report 24272046 (Version 1)
Quarter: 2024Q3

REPORT INFORMATION
  Report Type: Spontaneous
  Country: US (occurrence: US)
  Receive Date: 20240902
  Receipt Date: 20240902
  Transmission Date: 20241017
  Serious: Yes (Other)
  Sender: CSL BEHRING
  Company Number: US-BEH-2024177660

PATIENT
  Age: 70 Year
  Sex: Female

DRUGS (4)
  1. HIZENTRA [Suspect]
     Active Substance: HUMAN IMMUNOGLOBULIN G
     Indication: Immunodeficiency common variable
     Dosage: 10 G/50 ML, QW
     Route: 058
     Dates: start: 20240207
  2. LIDOCAINE [Concomitant]
     Active Substance: LIDOCAINE
  3. TYMLOS [Concomitant]
     Active Substance: ABALOPARATIDE
  4. PRILOCAINE [Concomitant]
     Active Substance: PRILOCAINE

REACTIONS (2)
  - Therapy non-responder [Not Recovered/Not Resolved]
  - Urinary tract infection [Recovering/Resolving]

NARRATIVE: CASE EVENT DATE: 20240818
